FAERS Safety Report 5489890-1 (Version None)
Quarter: 2007Q4

REPORT INFORMATION
  Report Type: 
  Country: None (occurrence: None)
  Receive Date: 20071018
  Receipt Date: 20070917
  Transmission Date: 20080405
  Serious: Yes (Other)
  Sender: FDA-Public Use
  Company Number: GB-PFIZER INC-2006112389

PATIENT
  Sex: Female
  Weight: 75 kg

DRUGS (16)
  1. ATORVASTATIN [Suspect]
     Indication: CORONARY ARTERY DISEASE
     Route: 048
     Dates: start: 20050217, end: 20050317
  2. ATORVASTATIN [Suspect]
     Dosage: DAILY DOSE:40MG
     Route: 048
  3. CARVEDILOL [Concomitant]
     Route: 048
  4. FUROSEMIDE [Concomitant]
     Route: 048
     Dates: start: 19990906
  5. LOSARTAN POTASSIUM [Concomitant]
     Route: 048
     Dates: start: 20030101
  6. ARGININE [Concomitant]
     Route: 048
  7. CITRULLINE [Concomitant]
     Route: 048
     Dates: start: 20000910
  8. ADCAL-D3 [Concomitant]
     Route: 048
     Dates: start: 20040101
  9. CLOPIDOGREL [Concomitant]
     Route: 048
     Dates: start: 20030215
  10. GAVISCON [Concomitant]
     Route: 048
     Dates: start: 19990101
  11. QUININE SULFATE [Concomitant]
     Route: 048
     Dates: start: 19990101
  12. OMEGA-3 TRIGLYCERIDES [Concomitant]
     Route: 048
     Dates: start: 20000101
  13. OMEPRAZOLE [Concomitant]
     Route: 048
     Dates: start: 20041027
  14. LORATADINE [Concomitant]
     Route: 048
     Dates: start: 20000106
  15. SALBUTAMOL [Concomitant]
     Route: 055
     Dates: start: 19990101
  16. IPRATROPIUM BROMIDE [Concomitant]
     Route: 055
     Dates: start: 20020803

REACTIONS (3)
  - DEPRESSED MOOD [None]
  - REFUSAL OF TREATMENT BY PATIENT [None]
  - SUICIDAL IDEATION [None]
